FAERS Safety Report 9719840 (Version 2)
Quarter: 2013Q4

REPORT INFORMATION
  Report Type: Spontaneous
  Country: DE (occurrence: DE)
  Receive Date: 20131128
  Receipt Date: 20131220
  Transmission Date: 20140711
  Serious: Yes (Other)
  Sender: FDA-Public Use
  Company Number: DE-JNJFOC-20131112864

PATIENT
  Sex: Male

DRUGS (7)
  1. HALDOL [Suspect]
     Indication: SCHIZOAFFECTIVE DISORDER
     Route: 065
     Dates: start: 20131018
  2. HALDOL [Suspect]
     Indication: SCHIZOAFFECTIVE DISORDER
     Route: 065
  3. HALDOL [Suspect]
     Indication: SCHIZOAFFECTIVE DISORDER
     Route: 030
     Dates: start: 20131020, end: 20131020
  4. VALPROAT [Suspect]
     Indication: SCHIZOAFFECTIVE DISORDER
     Route: 065
  5. VALPROAT [Suspect]
     Indication: SCHIZOAFFECTIVE DISORDER
     Route: 065
  6. CLOZAPIN [Suspect]
     Indication: SCHIZOAFFECTIVE DISORDER
     Route: 065
  7. CLOZAPIN [Suspect]
     Indication: SCHIZOAFFECTIVE DISORDER
     Route: 065
     Dates: start: 20131018

REACTIONS (1)
  - Vasculitis [Recovering/Resolving]
